FAERS Safety Report 7817982 (Version 8)
Quarter: 2013Q3

REPORT INFORMATION
  Report Type: Report from Study
  Country: DE (occurrence: DE)
  Receive Date: 20110217
  Receipt Date: 20130701
  Transmission Date: 20140515
  Serious: Yes (Life-Threatening, Hospitalization, Other)
  Sender: FDA-Public Use
  Company Number: PHHY2011DE09626

PATIENT
  Age: 38 Year
  Sex: Male
  Weight: 82.99 kg

DRUGS (4)
  1. AMN107 [Suspect]
     Indication: CHRONIC MYELOID LEUKAEMIA
     Dosage: 800 MG/DAY
     Route: 048
     Dates: start: 20110129
  2. AMN107 [Suspect]
     Dosage: 400 MG/DAY
     Route: 048
     Dates: start: 20110313
  3. DIOVAN [Concomitant]
     Dosage: 1 DF, QD
  4. BERODUAL [Concomitant]

REACTIONS (26)
  - Pancreatitis [Recovered/Resolved]
  - Vomiting [Unknown]
  - Tachycardia [Unknown]
  - Steatorrhoea [Unknown]
  - Pyrexia [Unknown]
  - Lipase increased [Unknown]
  - Abdominal pain upper [Unknown]
  - Nausea [Unknown]
  - Decreased appetite [Unknown]
  - Visual impairment [Not Recovered/Not Resolved]
  - General physical health deterioration [Not Recovered/Not Resolved]
  - Sleep disorder [Not Recovered/Not Resolved]
  - Sleep apnoea syndrome [Unknown]
  - Type 2 diabetes mellitus [Unknown]
  - Thirst [Unknown]
  - Glycosylated haemoglobin increased [Unknown]
  - Kidney enlargement [Unknown]
  - Pleural effusion [Unknown]
  - Lacrimal disorder [Not Recovered/Not Resolved]
  - Cholelithiasis [Unknown]
  - C-reactive protein increased [Unknown]
  - Splenomegaly [Unknown]
  - Muscle spasms [Not Recovered/Not Resolved]
  - Pruritus [Not Recovered/Not Resolved]
  - Dry mouth [Not Recovered/Not Resolved]
  - Diarrhoea [Not Recovered/Not Resolved]
